FAERS Safety Report 12721859 (Version 2)
Quarter: 2019Q3

REPORT INFORMATION
  Report Type: Spontaneous
  Country: JP (occurrence: JP)
  Receive Date: 20160907
  Receipt Date: 20190812
  Transmission Date: 20191004
  Serious: Yes (Hospitalization, Other)
  Sender: FDA-Public Use
  Company Number: JP-SA-2016SA104850

PATIENT
  Age: 67 Year
  Sex: Male
  Weight: 60 kg

DRUGS (35)
  1. CALCIUM LEVOFOLINATE [Suspect]
     Active Substance: LEVOLEUCOVORIN CALCIUM
     Indication: RECTAL CANCER
     Dosage: 330 MG,QD
     Route: 041
     Dates: start: 20160412, end: 20160412
  2. CALCIUM LEVOFOLINATE [Suspect]
     Active Substance: LEVOLEUCOVORIN CALCIUM
     Dosage: 330 MG,QD
     Route: 041
     Dates: start: 20160623, end: 20160623
  3. FLUOROURACIL. [Suspect]
     Active Substance: FLUOROURACIL
     Dosage: 4780 MG,QOD
     Route: 041
     Dates: start: 20160707, end: 20160707
  4. BEVACIZUMAB. [Suspect]
     Active Substance: BEVACIZUMAB
     Dosage: 300 MG, QD
     Route: 041
     Dates: start: 20160516, end: 20160516
  5. BEVACIZUMAB. [Suspect]
     Active Substance: BEVACIZUMAB
     Dosage: 300 MG, QD
     Route: 041
     Dates: start: 20160707, end: 20160707
  6. ELPLAT [Suspect]
     Active Substance: OXALIPLATIN
     Dosage: 140 MG,QD
     Route: 041
     Dates: start: 20160707, end: 20160707
  7. FLUOROURACIL. [Suspect]
     Active Substance: FLUOROURACIL
     Dosage: 5340 MG,QOD
     Route: 041
     Dates: start: 20160426, end: 20160426
  8. IRINOTECAN [Suspect]
     Active Substance: IRINOTECAN
     Dosage: 250 MG,QD
     Route: 041
     Dates: start: 20160707, end: 20160707
  9. AMLODIPINE BESILATE [Concomitant]
     Active Substance: AMLODIPINE BESYLATE
     Dosage: UNK UNK,UNK
     Route: 065
     Dates: start: 20160404
  10. CALCIUM LEVOFOLINATE [Suspect]
     Active Substance: LEVOLEUCOVORIN CALCIUM
     Dosage: 330 MG,QD
     Route: 041
     Dates: start: 20160516, end: 20160516
  11. IRINOTECAN [Suspect]
     Active Substance: IRINOTECAN
     Dosage: 270 MG,QD
     Route: 041
     Dates: start: 20160426, end: 20160426
  12. ESOMEPRAZOLE MAGNESIUM. [Concomitant]
     Active Substance: ESOMEPRAZOLE MAGNESIUM
     Dosage: UNK UNK,UNK
     Route: 065
     Dates: start: 20160407
  13. CLINDAMYCIN [CLINDAMYCIN PHOSPHATE] [Concomitant]
     Dosage: UNK UNK,UNK
     Route: 065
     Dates: start: 20160803
  14. ELPLAT [Suspect]
     Active Substance: OXALIPLATIN
     Indication: RECTAL CANCER
     Dosage: 140 MG,QD
     Route: 041
     Dates: start: 20160412, end: 20160412
  15. CALCIUM LEVOFOLINATE [Suspect]
     Active Substance: LEVOLEUCOVORIN CALCIUM
     Dosage: 330 MG,QD
     Route: 041
     Dates: start: 20160426, end: 20160426
  16. CALCIUM CARBONATE. [Concomitant]
     Active Substance: CALCIUM CARBONATE
     Dosage: UNK UNK,UNK
     Route: 065
     Dates: start: 20160426
  17. MAXIPIME [Concomitant]
     Active Substance: CEFEPIME HYDROCHLORIDE
     Dosage: UNK UNK,UNK
     Route: 065
     Dates: start: 20160713, end: 20160802
  18. ELPLAT [Suspect]
     Active Substance: OXALIPLATIN
     Dosage: 140 MG,QD
     Route: 041
     Dates: start: 20160516, end: 20160516
  19. CALCIUM LEVOFOLINATE [Suspect]
     Active Substance: LEVOLEUCOVORIN CALCIUM
     Dosage: 330 MG,QD
     Route: 041
     Dates: start: 20160707, end: 20160707
  20. BEVACIZUMAB. [Suspect]
     Active Substance: BEVACIZUMAB
     Dosage: 300 MG, QD
     Route: 041
     Dates: start: 20160426, end: 20160426
  21. IRINOTECAN [Suspect]
     Active Substance: IRINOTECAN
     Dosage: 250 MG,QD
     Route: 041
     Dates: start: 20160623, end: 20160623
  22. CALONAL [Concomitant]
     Active Substance: ACETAMINOPHEN
     Dosage: UNK UNK,UNK
     Route: 065
     Dates: start: 20160526, end: 20160526
  23. CANDESARTAN CILEXETIL. [Concomitant]
     Active Substance: CANDESARTAN CILEXETIL
     Dosage: UNK UNK,UNK
     Route: 065
     Dates: start: 20160401
  24. ELPLAT [Suspect]
     Active Substance: OXALIPLATIN
     Dosage: 140 MG,QD
     Route: 041
     Dates: start: 20160623, end: 20160623
  25. FLUOROURACIL. [Suspect]
     Active Substance: FLUOROURACIL
     Indication: RECTAL CANCER
     Dosage: 5340 MG,QOD
     Route: 041
     Dates: start: 20160412, end: 20160412
  26. FLUOROURACIL. [Suspect]
     Active Substance: FLUOROURACIL
     Dosage: 5340 MG,QOD
     Route: 041
     Dates: start: 20160516, end: 20160516
  27. BEVACIZUMAB. [Suspect]
     Active Substance: BEVACIZUMAB
     Indication: RECTAL CANCER
     Dosage: 300 MG, QD
     Route: 041
     Dates: start: 20160412, end: 20160412
  28. BEVACIZUMAB. [Suspect]
     Active Substance: BEVACIZUMAB
     Dosage: 300 MG, QD
     Route: 041
     Dates: start: 20160623, end: 20160623
  29. CRAVIT [Concomitant]
     Active Substance: LEVOFLOXACIN
     Dosage: UNK UNK,UNK
     Route: 065
     Dates: start: 20160525, end: 20160525
  30. SULBACILLIN [Concomitant]
     Active Substance: AMPICILLIN SODIUM\SULBACTAM SODIUM
     Dosage: UNK UNK,UNK
     Route: 065
     Dates: start: 20160803
  31. IRINOTECAN [Suspect]
     Active Substance: IRINOTECAN
     Dosage: 250 MG,QD
     Route: 041
     Dates: start: 20160516, end: 20160516
  32. ELPLAT [Suspect]
     Active Substance: OXALIPLATIN
     Dosage: 140 MG,QD
     Route: 041
     Dates: start: 20160426, end: 20160426
  33. FLUOROURACIL. [Suspect]
     Active Substance: FLUOROURACIL
     Dosage: 4780 MG,QOD
     Route: 041
     Dates: start: 20160623, end: 20160623
  34. IRINOTECAN [Suspect]
     Active Substance: IRINOTECAN
     Indication: RECTAL CANCER
     Dosage: 270 MG,QD
     Route: 041
     Dates: start: 20160412, end: 20160412
  35. LOXOPROFEN SODIUM HYDRATE [Concomitant]
     Active Substance: LOXOPROFEN SODIUM DIHYDRATE
     Dosage: UNK UNK,UNK
     Route: 065
     Dates: start: 20160407

REACTIONS (18)
  - Sepsis [Recovered/Resolved]
  - White blood cell count decreased [Recovered/Resolved]
  - Stomatitis [Unknown]
  - Hypertension [Unknown]
  - Platelet count decreased [Recovered/Resolved]
  - Neutrophil count decreased [Unknown]
  - Nausea [Unknown]
  - Pyrexia [Unknown]
  - Pneumonia pneumococcal [Recovered/Resolved]
  - Psoas abscess [Recovering/Resolving]
  - Fatigue [Unknown]
  - Hiccups [Unknown]
  - Decreased appetite [Unknown]
  - Spondylitis [Recovering/Resolving]
  - Malaise [Unknown]
  - Alopecia [Unknown]
  - Hepatic function abnormal [Unknown]
  - Diarrhoea [Unknown]

NARRATIVE: CASE EVENT DATE: 20160525
